FAERS Safety Report 18231671 (Version 1)
Quarter: 2020Q3

REPORT INFORMATION
  Report Type: Report from Study
  Country: US (occurrence: US)
  Receive Date: 20200904
  Receipt Date: 20200904
  Transmission Date: 20201103
  Serious: Yes (Death, Other)
  Sender: FDA-Public Use
  Company Number: US-PFIZER INC-2020342269

PATIENT

DRUGS (9)
  1. SIROLIMUS. [Suspect]
     Active Substance: SIROLIMUS
     Dosage: UNK
  2. METHOTREXATE SODIUM. [Concomitant]
     Active Substance: METHOTREXATE SODIUM
     Indication: T-CELL LYMPHOMA
     Dosage: UNK, CYCLIC (2 G/M2, ON DAY 1)
     Route: 042
  3. MESNA. [Concomitant]
     Active Substance: MESNA
     Indication: T-CELL LYMPHOMA
     Dosage: 300 MG/M2, CYCLIC
  4. IFOSFAMIDE. [Concomitant]
     Active Substance: IFOSFAMIDE
     Indication: T-CELL LYMPHOMA
     Dosage: 1500 MG/M2, CYCLIC
     Route: 042
  5. PEG/L?ASPARAGINASE [Concomitant]
     Active Substance: PEGASPARGASE
     Indication: T-CELL LYMPHOMA
     Dosage: UNK, CYCLIC
  6. TACROLIMUS. [Suspect]
     Active Substance: TACROLIMUS
  7. DEXAMETHASONE. [Concomitant]
     Active Substance: DEXAMETHASONE
     Indication: T-CELL LYMPHOMA
     Dosage: 40 MG, CYCLIC
     Route: 042
  8. ETOPOSIDE. [Concomitant]
     Active Substance: ETOPOSIDE
     Indication: T-CELL LYMPHOMA
     Dosage: 100 MG/M2, CYCLIC
  9. LEUCOVORINE [Concomitant]
     Active Substance: LEUCOVORIN
     Indication: T-CELL LYMPHOMA
     Dosage: 25 MG

REACTIONS (1)
  - Microangiopathic haemolytic anaemia [Fatal]
